FAERS Safety Report 15663548 (Version 3)
Quarter: 2018Q4

REPORT INFORMATION
  Report Type: Report from Study
  Country: None (occurrence: US)
  Receive Date: 20181128
  Receipt Date: 20181220
  Transmission Date: 20190205
  Serious: Yes (Hospitalization)
  Sender: FDA-Public Use
  Company Number: US-ABBVIE-18K-163-2569351-00

PATIENT
  Age: 55 Year
  Sex: Female
  Weight: 40.86 kg

DRUGS (1)
  1. MAVYRET [Suspect]
     Active Substance: GLECAPREVIR\PIBRENTASVIR
     Indication: HEPATITIS C
     Route: 048
     Dates: start: 20181025, end: 2018

REACTIONS (9)
  - Abdominal discomfort [Not Recovered/Not Resolved]
  - Retching [Recovering/Resolving]
  - Intra-abdominal fluid collection [Recovering/Resolving]
  - Dizziness [Recovering/Resolving]
  - Jaundice [Recovering/Resolving]
  - Hypotension [Recovering/Resolving]
  - Fall [Recovered/Resolved]
  - Disorientation [Recovering/Resolving]
  - Vomiting projectile [Recovering/Resolving]

NARRATIVE: CASE EVENT DATE: 2018
